FAERS Safety Report 8812959 (Version 2)
Quarter: 2012Q4

REPORT INFORMATION
  Report Type: Report from Study
  Country: GB (occurrence: GB)
  Receive Date: 20120927
  Receipt Date: 20121024
  Transmission Date: 20130627
  Serious: Yes (Hospitalization)
  Sender: FDA-Public Use
  Company Number: GB-ROCHE-1131904

PATIENT
  Age: 63 Year
  Sex: Female

DRUGS (7)
  1. TRASTUZUMAB [Suspect]
     Indication: BREAST CANCER
     Route: 042
     Dates: start: 20031127, end: 20031231
  2. DOXORUBICIN [Suspect]
     Indication: BREAST CANCER
     Dosage: 60 units, every cycle
     Route: 042
     Dates: start: 20030904, end: 20031106
  3. CYCLOPHOSPHAMIDE [Suspect]
     Indication: BREAST CANCER
     Dosage: 600 unit(s);Every cycle
     Route: 042
     Dates: start: 20030904, end: 20031106
  4. DOCETAXEL [Suspect]
     Indication: BREAST CANCER
     Dosage: 100 unit(s);Every cycle
     Route: 042
     Dates: start: 20031128, end: 20031219
  5. METFORMIN [Concomitant]
     Route: 065
     Dates: start: 20110630
  6. ATORVASTATIN [Concomitant]
     Route: 065
     Dates: start: 20080805
  7. LANSOPRAZOLE [Concomitant]
     Route: 065
     Dates: start: 20100106

REACTIONS (1)
  - Atrial fibrillation [Recovered/Resolved]
